FAERS Safety Report 10498625 (Version 2)
Quarter: 2014Q4

REPORT INFORMATION
  Report Type: Spontaneous
  Country: SE (occurrence: SE)
  Receive Date: 20141006
  Receipt Date: 20141006
  Transmission Date: 20150528
  Serious: Yes (Other)
  Sender: FDA-Public Use
  Company Number: SE-UCBSA-2014010954

PATIENT
  Age: 35 Year
  Sex: Female

DRUGS (4)
  1. FYCOMPA [Concomitant]
     Active Substance: PERAMPANEL
     Indication: PRODUCT USED FOR UNKNOWN INDICATION
     Dosage: UNK
     Dates: end: 2014
  2. ERGENYL [Suspect]
     Active Substance: VALPROIC ACID
     Indication: EPILEPSY
     Dosage: UNK
  3. VIMPAT [Suspect]
     Active Substance: LACOSAMIDE
     Indication: EPILEPSY
     Dosage: UNKNOWN DOSE
  4. FYCOMPA [Concomitant]
     Active Substance: PERAMPANEL
     Dosage: 12 MG, ONCE DAILY (QD), DOSE IINCREASED
     Dates: start: 2014

REACTIONS (4)
  - Tremor [Not Recovered/Not Resolved]
  - Seizure [Unknown]
  - Loss of consciousness [Unknown]
  - Fall [Unknown]

NARRATIVE: CASE EVENT DATE: 20140728
